FAERS Safety Report 9883254 (Version 1)
Quarter: 2014Q1

REPORT INFORMATION
  Report Type: Report from Study
  Country: CA (occurrence: CA)
  Receive Date: 20140209
  Receipt Date: 20140209
  Transmission Date: 20141002
  Serious: Yes (Other)
  Sender: FDA-Public Use
  Company Number: CA-ROCHE-1345784

PATIENT
  Age: 51 Year
  Sex: Female
  Weight: 60 kg

DRUGS (4)
  1. ACTEMRA [Suspect]
     Indication: RHEUMATOID ARTHRITIS
     Route: 042
     Dates: start: 20131008
  2. PREDNISONE [Concomitant]
  3. CIPROLEX [Concomitant]
  4. IMOVANE [Concomitant]

REACTIONS (1)
  - Dysphemia [Recovering/Resolving]
